FAERS Safety Report 9720681 (Version 3)
Quarter: 2014Q1

REPORT INFORMATION
  Report Type: Spontaneous
  Country: GB (occurrence: GB)
  Receive Date: 20131129
  Receipt Date: 20140102
  Transmission Date: 20141002
  Serious: Yes (Hospitalization)
  Sender: FDA-Public Use
  Company Number: PHFR2013GB006818

PATIENT
  Age: 29 Year
  Sex: Male

DRUGS (1)
  1. CLOZARIL [Suspect]
     Indication: SCHIZOPHRENIA
     Dosage: 350 MG
     Route: 048
     Dates: start: 20131030

REACTIONS (5)
  - Infection [Unknown]
  - Malaise [Unknown]
  - Tuberculosis [Unknown]
  - Lower respiratory tract infection [Unknown]
  - White blood cell count increased [Recovered/Resolved]
